FAERS Safety Report 7250053-0 (Version None)
Quarter: 2011Q1

REPORT INFORMATION
  Report Type: 
  Country: None (occurrence: None)
  Receive Date: 20110128
  Receipt Date: 20110119
  Transmission Date: 20110831
  Serious: Yes (Death, Hospitalization, Other)
  Sender: FDA-Public Use
  Company Number: DE-BAYER-200928880GPV

PATIENT
  Sex: Female
  Weight: 66.5 kg

DRUGS (19)
  1. ONE ALPHA [Concomitant]
     Indication: RENAL FAILURE
     Dosage: 0.25 ?G (DAILY DOSE), ,
     Dates: start: 20040101
  2. BLINDED SORAFENIB (RAF KINASE INHIBITOR) [Suspect]
     Dosage: 100 MG, QD
     Route: 048
     Dates: start: 20090812, end: 20090815
  3. SORAFENIB (RAF KINASE INHIBITOR) [Suspect]
     Indication: HEPATIC NEOPLASM MALIGNANT
     Dosage: 200 MG, BID
     Dates: start: 20090804, end: 20090815
  4. METOHEXAL [Concomitant]
     Indication: HYPERTENSION
     Dosage: 71.25 MG (DAILY DOSE), , ORAL
     Route: 048
     Dates: start: 20080604
  5. GLUCOBAY [Concomitant]
     Dosage: 100 MG (DAILY DOSE), ,
     Dates: start: 20040101
  6. ONE ALPHA [Concomitant]
     Indication: VITAMIN D DEFICIENCY
  7. LACTULOSE [Concomitant]
     Dosage: 4 MB
     Dates: start: 20090816
  8. DOCITON [Concomitant]
     Indication: HYPERTENSION
     Dosage: 15 MG (DAILY DOSE), ,
     Dates: start: 20090816
  9. KONAKION [Concomitant]
     Indication: VITAMIN K DEFICIENCY
     Dosage: 10 GTT (DAILY DOSE), ,
     Dates: start: 20090816
  10. MOXODURA [Concomitant]
     Indication: HYPERTENSION
     Dosage: 0.6 MG (DAILY DOSE), , ORAL
     Route: 048
     Dates: start: 20040101
  11. PANTOZOL [Concomitant]
     Indication: HAEMATEMESIS
     Dosage: 80 MG (DAILY DOSE), ,
     Dates: start: 20090816
  12. BELOC ZOK [Concomitant]
     Indication: HYPERTENSION
     Dosage: 71.25 MG (DAILY DOSE), ,
     Dates: start: 20090816
  13. AMLODIPINE [Concomitant]
     Indication: HYPERTENSION
     Dosage: 5 MG (DAILY DOSE), , ORAL
     Route: 048
     Dates: start: 20080604
  14. BLINDED SORAFENIB (RAF KINASE INHIBITOR) [Suspect]
     Indication: HEPATIC NEOPLASM MALIGNANT
     Dosage: 150 MG, QD
     Route: 048
     Dates: start: 20090804, end: 20090812
  15. GLUCOBAY [Concomitant]
     Indication: TYPE 2 DIABETES MELLITUS
     Dosage: 50
     Route: 058
     Dates: start: 20080604
  16. PROTAPHAN [Concomitant]
     Indication: TYPE 2 DIABETES MELLITUS
     Dosage: 5 U (DAILY DOSE), , SUBCUTANEOUS
     Route: 058
     Dates: start: 20040101
  17. SPIRONOLACTONE [Concomitant]
     Indication: OEDEMA
     Dosage: 50 MG (DAILY DOSE), ,
     Dates: start: 20090816
  18. ASPIRIN [Concomitant]
     Indication: HYPERTENSION
     Dosage: 100 MG (DAILY DOSE), , ORAL
     Route: 048
     Dates: start: 20080604
  19. COAPROVEL [Concomitant]
     Indication: HYPERTENSION
     Dosage: AS USED DOSE: 300/25 MG
     Route: 048
     Dates: start: 20080604

REACTIONS (6)
  - HEPATIC ENCEPHALOPATHY [None]
  - NEOPLASM MALIGNANT [None]
  - BLOOD BILIRUBIN INCREASED [None]
  - RASH [None]
  - HEPATIC NEOPLASM MALIGNANT [None]
  - PALMAR-PLANTAR ERYTHRODYSAESTHESIA SYNDROME [None]
